FAERS Safety Report 7168812-1 (Version None)
Quarter: 2010Q4

REPORT INFORMATION
  Report Type: 
  Country: None (occurrence: None)
  Receive Date: 20101216
  Receipt Date: 20100208
  Transmission Date: 20110411
  Serious: No
  Sender: FDA-Public Use
  Company Number: US-AMGEN-TCS385591

PATIENT

DRUGS (6)
  1. ENBREL [Suspect]
     Indication: PRODUCT USED FOR UNKNOWN INDICATION
     Dosage: 50 MG, QWK
     Dates: start: 20021001, end: 20100101
  2. ESOMEPRAZOLE MAGNESIUM [Concomitant]
     Dosage: UNK UNK, UNK
  3. IBUPROFEN [Concomitant]
     Dosage: UNK UNK, UNK
  4. ASPIRIN [Concomitant]
  5. CYANOCOBALAMIN [Concomitant]
  6. REMICADE [Concomitant]
     Dosage: UNK UNK, UNK
     Dates: start: 20091222

REACTIONS (2)
  - DRUG INEFFECTIVE [None]
  - SPONDYLOARTHROPATHY [None]
